FAERS Safety Report 16871438 (Version 1)
Quarter: 2019Q4

REPORT INFORMATION
  Report Type: Spontaneous
  Country: US (occurrence: US)
  Receive Date: 20190930
  Receipt Date: 20190930
  Transmission Date: 20200122
  Serious: No
  Sender: FDA-Public Use
  Company Number: None

PATIENT
  Age: 41 Year
  Sex: Male
  Weight: 55.35 kg

DRUGS (1)
  1. INVEGA [Suspect]
     Active Substance: PALIPERIDONE
     Indication: ANXIETY
     Dosage: ?          QUANTITY:14 TABLET(S);?
     Route: 030
     Dates: start: 20190911, end: 20190927

REACTIONS (9)
  - Throat irritation [None]
  - Nasal discomfort [None]
  - Headache [None]
  - Epistaxis [None]
  - Asthenia [None]
  - Somnolence [None]
  - Mouth haemorrhage [None]
  - Constipation [None]
  - Dizziness [None]

NARRATIVE: CASE EVENT DATE: 20190927
